FAERS Safety Report 4316162-0 (Version None)
Quarter: 2004Q1

REPORT INFORMATION
  Report Type: 
  Country: None (occurrence: None)
  Receive Date: 20040312
  Receipt Date: 20040219
  Transmission Date: 20041129
  Serious: Yes (Other)
  Sender: FDA-Public Use
  Company Number: PHBS2004BR02487

PATIENT
  Age: 42 Year
  Sex: Female
  Weight: 75 kg

DRUGS (4)
  1. ZELMAC [Suspect]
     Indication: IRRITABLE BOWEL SYNDROME
     Dosage: 6 MG, Q12H
     Route: 048
     Dates: start: 20040216, end: 20040217
  2. ZELMAC [Suspect]
     Dosage: 6 MG, Q12H
     Route: 048
     Dates: start: 20040220
  3. EUTHYROX [Concomitant]
     Indication: HYPOTHYROIDISM
     Dosage: 125 MG/DAY
     Route: 048
     Dates: start: 20040101
  4. SIMVASTATIN [Concomitant]

REACTIONS (2)
  - CONSTIPATION [None]
  - RECTAL HAEMORRHAGE [None]
